FAERS Safety Report 23308054 (Version 1)
Quarter: 2023Q4

REPORT INFORMATION
  Report Type: Spontaneous
  Country: FR (occurrence: FR)
  Receive Date: 20231218
  Receipt Date: 20231218
  Transmission Date: 20240109
  Serious: Yes (Other)
  Sender: FDA-Public Use
  Company Number: None

PATIENT
  Age: 47 Year
  Weight: 73 kg

DRUGS (7)
  1. FLUDARABINE PHOSPHATE [Suspect]
     Active Substance: FLUDARABINE PHOSPHATE
     Indication: Diffuse large B-cell lymphoma stage IV
     Dosage: TIME INTERVAL: 1 TOTAL
     Route: 042
     Dates: start: 20230914, end: 20230916
  2. SYLVANT [Suspect]
     Active Substance: SILTUXIMAB
     Indication: Cytokine release syndrome
     Dosage: TIME INTERVAL: 1 TOTAL
     Route: 042
     Dates: start: 20230922, end: 20230922
  3. YESCARTA [Suspect]
     Active Substance: AXICABTAGENE CILOLEUCEL
     Indication: Diffuse large B-cell lymphoma stage IV
     Dosage: TIME INTERVAL: 1 TOTAL
     Route: 042
     Dates: start: 20230919, end: 20230919
  4. KINERET [Suspect]
     Active Substance: ANAKINRA
     Indication: Immune effector cell-associated neurotoxicity syndrome
     Route: 042
     Dates: start: 20230924, end: 202309
  5. SOLU-MEDROL [Suspect]
     Active Substance: METHYLPREDNISOLONE SODIUM SUCCINATE
     Indication: Cytokine release syndrome
     Route: 042
     Dates: start: 20230924, end: 20231012
  6. CYCLOPHOSPHAMIDE [Suspect]
     Active Substance: CYCLOPHOSPHAMIDE
     Indication: Diffuse large B-cell lymphoma stage IV
     Dosage: TIME INTERVAL: 1 TOTAL
     Route: 042
     Dates: start: 20230914, end: 20230916
  7. TOCILIZUMAB [Suspect]
     Active Substance: TOCILIZUMAB
     Indication: Cytokine release syndrome
     Dosage: 4 DOSES IN TOTAL,
     Route: 042
     Dates: start: 20230920, end: 20230921

REACTIONS (1)
  - BCG related cystitis [Recovering/Resolving]

NARRATIVE: CASE EVENT DATE: 20231009
